FAERS Safety Report 7817099-2 (Version None)
Quarter: 2011Q4

REPORT INFORMATION
  Report Type: 
  Country: None (occurrence: None)
  Receive Date: 20111017
  Receipt Date: 20111010
  Transmission Date: 20120403
  Serious: Yes (Hospitalization, Other)
  Sender: FDA-Public Use
  Company Number: GB-PFIZER INC-2011236257

PATIENT
  Age: 20 Month
  Sex: Male

DRUGS (6)
  1. FLUCONAZOLE [Suspect]
     Dosage: 6 MG/KG, UNK
     Route: 042
  2. TACROLIMUS [Suspect]
     Indication: IMMUNOSUPPRESSION
     Dosage: 2.5 MG, UNK
     Route: 042
  3. FLUCONAZOLE [Suspect]
     Indication: FUNGAL PERITONITIS
     Dosage: 3 MG/KG, UNK
     Route: 048
  4. FLUCONAZOLE [Suspect]
     Dosage: 3 MG/KG, UNK
     Route: 042
  5. FLUCONAZOLE [Suspect]
     Dosage: 3 MG/KG
     Route: 042
  6. FLUCONAZOLE [Suspect]
     Dosage: 6 MG/KG
     Route: 042

REACTIONS (3)
  - POTENTIATING DRUG INTERACTION [None]
  - MENTAL STATUS CHANGES [None]
  - TOXICITY TO VARIOUS AGENTS [None]
